FAERS Safety Report 13956000 (Version 1)
Quarter: 2017Q3

REPORT INFORMATION
  Report Type: Spontaneous
  Country: CH (occurrence: CH)
  Receive Date: 20170911
  Receipt Date: 20170911
  Transmission Date: 20171128
  Serious: Yes (Other)
  Sender: FDA-Public Use
  Company Number: CH-BIOGEN-2017BI00454845

PATIENT
  Age: 25 Year
  Sex: Female
  Weight: 44 kg

DRUGS (4)
  1. TECFIDERA [Suspect]
     Active Substance: DIMETHYL FUMARATE
     Indication: MULTIPLE SCLEROSIS
     Route: 048
     Dates: start: 201705
  2. VITAMIN D3 STREULI TROPFEN [Concomitant]
     Indication: VITAMIN D DECREASED
     Route: 048
  3. YARINA [Concomitant]
     Active Substance: DROSPIRENONE\ETHINYL ESTRADIOL
     Indication: CHEMICAL CONTRACEPTION
     Route: 048
  4. BECOZYM [Concomitant]
     Active Substance: VITAMINS
     Indication: VITAMIN B COMPLEX DEFICIENCY
     Route: 048
     Dates: start: 20170320

REACTIONS (1)
  - Deep vein thrombosis [Not Recovered/Not Resolved]

NARRATIVE: CASE EVENT DATE: 20170809
